FAERS Safety Report 14599745 (Version 1)
Quarter: 2018Q1

REPORT INFORMATION
  Report Type: Report from Study
  Country: IT (occurrence: IT)
  Receive Date: 20180305
  Receipt Date: 20180305
  Transmission Date: 20180509
  Serious: Yes (Hospitalization)
  Sender: FDA-Public Use
  Company Number: IT-PFIZER INC-2018082238

PATIENT
  Age: 68 Year
  Sex: Male
  Weight: 84 kg

DRUGS (8)
  1. IRINOTECAN HCL [Suspect]
     Active Substance: IRINOTECAN HYDROCHLORIDE
     Indication: COLORECTAL CANCER METASTATIC
     Dosage: 360 MG, CYCLIC
     Route: 041
     Dates: start: 20150504, end: 20150504
  2. ZALTRAP [Suspect]
     Active Substance: ZIV-AFLIBERCEPT
     Indication: COLORECTAL CANCER METASTATIC
     Dosage: 336 MG, CYCLIC
     Route: 041
     Dates: start: 20150504, end: 20150504
  3. PANTOPRAZOLE [Concomitant]
     Active Substance: PANTOPRAZOLE
     Dosage: UNK
     Route: 065
     Dates: start: 20150310
  4. 5-FU /00098801/ [Suspect]
     Active Substance: FLUOROURACIL
     Dosage: 4800 MG, CYCLIC
     Route: 041
     Dates: start: 20150504, end: 20150504
  5. ATROPINE /00002802/ [Concomitant]
     Active Substance: ATROPINE
     Dosage: UNK
     Route: 065
     Dates: start: 20150504, end: 20150513
  6. SOLDESAM [Concomitant]
     Active Substance: DEXAMETHASONE
     Dosage: UNK
     Route: 065
     Dates: start: 20150504, end: 20150513
  7. 5-FU /00098801/ [Suspect]
     Active Substance: FLUOROURACIL
     Indication: COLORECTAL CANCER METASTATIC
     Dosage: 800 MG, CYCLIC
     Route: 040
     Dates: start: 20150504, end: 20150504
  8. LEUCOVORIN /00566701/ [Suspect]
     Active Substance: LEUCOVORIN
     Indication: COLORECTAL CANCER METASTATIC
     Dosage: 400 MG, CYCLIC
     Route: 041
     Dates: start: 20150504, end: 20150504

REACTIONS (6)
  - Subclavian vein thrombosis [Not Recovered/Not Resolved]
  - Depressed level of consciousness [Recovered/Resolved]
  - Asthenia [Recovered/Resolved]
  - Superior vena cava syndrome [Recovered/Resolved with Sequelae]
  - Decreased appetite [Recovered/Resolved]
  - Jugular vein thrombosis [Not Recovered/Not Resolved]

NARRATIVE: CASE EVENT DATE: 20150513
